FAERS Safety Report 7811478-5 (Version None)
Quarter: 2011Q4

REPORT INFORMATION
  Report Type: 
  Country: None (occurrence: None)
  Receive Date: 20111013
  Receipt Date: 20111006
  Transmission Date: 20120403
  Serious: Yes (Hospitalization)
  Sender: FDA-Public Use
  Company Number: US-JNJFOC-20111003102

PATIENT
  Sex: Female
  Weight: 78.47 kg

DRUGS (7)
  1. METHOTREXATE [Suspect]
     Indication: RHEUMATOID ARTHRITIS
     Route: 058
     Dates: start: 20070101
  2. GABAPENTIN [Concomitant]
     Indication: FIBROMYALGIA
     Route: 048
     Dates: start: 20080101
  3. PLAQUENIL [Concomitant]
     Indication: RHEUMATOID ARTHRITIS
     Route: 048
  4. MOBIC [Concomitant]
     Indication: RHEUMATOID ARTHRITIS
     Route: 048
  5. FOLIC ACID [Concomitant]
     Indication: RHEUMATOID ARTHRITIS
     Route: 048
  6. SIMPONI [Suspect]
     Indication: RHEUMATOID ARTHRITIS
     Route: 058
  7. VICODIN [Concomitant]
     Indication: PAIN
     Dosage: AS NEEDED
     Route: 048

REACTIONS (7)
  - NEPHROLITHIASIS [None]
  - DRUG DOSE OMISSION [None]
  - URINARY TRACT INFECTION [None]
  - DEVICE FAILURE [None]
  - OVARIAN CYST [None]
  - ENDOMETRIOSIS [None]
  - FALL [None]
